FAERS Safety Report 17201457 (Version 1)
Quarter: 2019Q4

REPORT INFORMATION
  Report Type: Report from Study
  Country: US (occurrence: US)
  Receive Date: 20191226
  Receipt Date: 20191226
  Transmission Date: 20200122
  Serious: No
  Sender: FDA-Public Use
  Company Number: US-KYOWAKIRIN-2019BKK020363

PATIENT

DRUGS (1)
  1. NOURIANZ [Suspect]
     Active Substance: ISTRADEFYLLINE
     Indication: PARKINSON^S DISEASE
     Dosage: 20 MG ON MON, WED, FRI
     Route: 065
     Dates: start: 201912, end: 201912

REACTIONS (4)
  - Inappropriate schedule of product administration [Unknown]
  - Confusional state [Unknown]
  - Sleep talking [Unknown]
  - Agitation [Unknown]

NARRATIVE: CASE EVENT DATE: 201912
